FAERS Safety Report 9696194 (Version 2)
Quarter: 2013Q4

REPORT INFORMATION
  Report Type: Spontaneous
  Country: JP (occurrence: JP)
  Receive Date: 20131119
  Receipt Date: 20131217
  Transmission Date: 20140711
  Serious: Yes (Other)
  Sender: FDA-Public Use
  Company Number: PHHY2013JP131140

PATIENT
  Age: 68 Year
  Sex: Female

DRUGS (4)
  1. NEORAL [Suspect]
     Indication: RHEUMATIC DISORDER
     Route: 048
  2. NEORAL [Suspect]
     Indication: OFF LABEL USE
  3. ENDOXAN [Suspect]
     Route: 065
  4. PREDONINE [Suspect]
     Route: 048

REACTIONS (1)
  - Myocarditis [Recovering/Resolving]
